FAERS Safety Report 4502966-8 (Version None)
Quarter: 2004Q4

REPORT INFORMATION
  Report Type: 
  Country: None (occurrence: None)
  Receive Date: 20041112
  Receipt Date: 20041102
  Transmission Date: 20050328
  Serious: Yes (Other)
  Sender: FDA-Public Use
  Company Number: 2004086855

PATIENT
  Age: 62 Year
  Sex: Female

DRUGS (8)
  1. NORVASC [Suspect]
     Indication: HYPERTENSION
     Dosage: 5 MG (5 MG, 1 IN 1 D), ORAL
     Route: 048
     Dates: start: 20040501
  2. LISINOPRIL [Concomitant]
  3. HYDROCHLOROTHIAZIDE [Concomitant]
  4. OMEPRAZOLE [Concomitant]
  5. CYCLOBENZAPRINE HYDROCHLORIDE [Concomitant]
  6. LEVOTHYROXINE SODIUM [Concomitant]
  7. SIMVASTATIN [Concomitant]
  8. VICODIN [Concomitant]

REACTIONS (10)
  - BURNING SENSATION [None]
  - DRY MOUTH [None]
  - FLUID RETENTION [None]
  - MUSCLE CRAMP [None]
  - NASOPHARYNGITIS [None]
  - OEDEMA PERIPHERAL [None]
  - ORAL SURGERY [None]
  - PAIN IN EXTREMITY [None]
  - SWELLING [None]
  - VISUAL ACUITY REDUCED [None]
